FAERS Safety Report 18133603 (Version 1)
Quarter: 2020Q3

REPORT INFORMATION
  Report Type: Spontaneous
  Country: CA (occurrence: CA)
  Receive Date: 20200811
  Receipt Date: 20200811
  Transmission Date: 20201103
  Serious: Yes (Life-Threatening)
  Sender: FDA-Public Use
  Company Number: CA-ACCORD-194576

PATIENT
  Age: 3 Year
  Sex: Male
  Weight: 16 kg

DRUGS (24)
  1. FUROSEMIDE. [Concomitant]
     Active Substance: FUROSEMIDE
  2. AMLODIPINE [Concomitant]
     Active Substance: AMLODIPINE BESYLATE
  3. BUSULFAN. [Suspect]
     Active Substance: BUSULFAN
     Indication: CHRONIC GRANULOMATOUS DISEASE
     Route: 042
  4. PARACETAMOL [Concomitant]
     Active Substance: ACETAMINOPHEN
  5. CICLOSPORIN [Concomitant]
     Active Substance: CYCLOSPORINE
  6. LORAZEPAM. [Concomitant]
     Active Substance: LORAZEPAM
  7. ANTITHYMOCYTE IMMUNOGLOBULIN ( [Concomitant]
     Active Substance: THYMOCYTE IMMUNE GLOBULIN NOS
     Dosage: POWDER FOR SOLUTION INTRAVENOUS
  8. FLUDARABINE/FLUDARABINE PHOSPHATE [Suspect]
     Active Substance: FLUDARABINE PHOSPHATE
     Indication: CHRONIC GRANULOMATOUS DISEASE
     Route: 042
  9. ACICLOVIR [Concomitant]
     Active Substance: ACYCLOVIR
  10. MAGNESIUM HYDROXIDE. [Concomitant]
     Active Substance: MAGNESIUM HYDROXIDE
  11. METHYLPREDNISOLONE. [Concomitant]
     Active Substance: METHYLPREDNISOLONE
  12. FLUDARABINE/FLUDARABINE PHOSPHATE [Suspect]
     Active Substance: FLUDARABINE PHOSPHATE
     Indication: CHRONIC GRANULOMATOUS DISEASE
     Route: 042
  13. ALTEPLASE. [Concomitant]
     Active Substance: ALTEPLASE
     Dosage: LIQUID INTRAVENOUS
  14. DEXAMETHASONE. [Concomitant]
     Active Substance: DEXAMETHASONE
     Dosage: LIQUID INTRA? ARTICULAR
  15. HYDROCORTISONE. [Concomitant]
     Active Substance: HYDROCORTISONE
     Dosage: POWDER FOR SOLUTION INTRAMUSCULAR
  16. COLECALCIFEROL [Concomitant]
     Active Substance: CHOLECALCIFEROL
  17. DIMENHYDRINATE. [Concomitant]
     Active Substance: DIMENHYDRINATE
     Dosage: LIQUID INTRAVENOUS
  18. BUSULFAN. [Suspect]
     Active Substance: BUSULFAN
     Indication: CHRONIC GRANULOMATOUS DISEASE
     Route: 042
  19. CEFTAZIDIME/CEFTAZIDIME PENTAHYDRATE [Concomitant]
     Active Substance: CEFTAZIDIME
  20. FLUCONAZOLE. [Concomitant]
     Active Substance: FLUCONAZOLE
  21. DIMENHYDRINATE. [Concomitant]
     Active Substance: DIMENHYDRINATE
  22. BUSULFAN. [Suspect]
     Active Substance: BUSULFAN
     Indication: CHRONIC GRANULOMATOUS DISEASE
     Route: 042
  23. EPINEPHRINE. [Concomitant]
     Active Substance: EPINEPHRINE
     Dosage: SOLUTION INTRAMUSCULAR
  24. LEVETIRACETAM. [Concomitant]
     Active Substance: LEVETIRACETAM

REACTIONS (7)
  - Aplasia [Unknown]
  - Thrombocytopenia [Unknown]
  - Aplastic anaemia [Unknown]
  - Pancytopenia [Unknown]
  - Febrile neutropenia [Unknown]
  - Mucosal inflammation [Unknown]
  - Transfusion [Unknown]
